FAERS Safety Report 15231781 (Version 1)
Quarter: 2018Q3

REPORT INFORMATION
  Report Type: Spontaneous
  Country: JP (occurrence: JP)
  Receive Date: 20180802
  Receipt Date: 20180802
  Transmission Date: 20181010
  Serious: Yes (Hospitalization)
  Sender: FDA-Public Use
  Company Number: PHJP2018JP014511

PATIENT
  Age: 37 Year
  Sex: Male

DRUGS (2)
  1. PHENYTOIN. [Suspect]
     Active Substance: PHENYTOIN
     Indication: EPILEPSY
     Dosage: UNK
     Route: 065
  2. CARBAMAZEPINE. [Suspect]
     Active Substance: CARBAMAZEPINE
     Indication: EPILEPSY
     Dosage: UNK
     Route: 065

REACTIONS (12)
  - Cardio-respiratory arrest [Recovering/Resolving]
  - Status epilepticus [Unknown]
  - Pyrexia [Unknown]
  - Muscle spasms [Unknown]
  - Ventricular tachycardia [Recovering/Resolving]
  - Overdose [Unknown]
  - Toxicity to various agents [Unknown]
  - Rhythm idioventricular [Recovering/Resolving]
  - Cardiogenic shock [Recovering/Resolving]
  - Altered state of consciousness [Recovering/Resolving]
  - Coma [Unknown]
  - Ventricular fibrillation [Recovering/Resolving]
